FAERS Safety Report 7339436-8 (Version None)
Quarter: 2011Q1

REPORT INFORMATION
  Report Type: 
  Country: None (occurrence: None)
  Receive Date: 20110308
  Receipt Date: 20101222
  Transmission Date: 20110831
  Serious: No
  Sender: FDA-Public Use
  Company Number: US-AMGEN-USASP2010010908

PATIENT
  Age: 84 Year
  Sex: Female

DRUGS (5)
  1. RED YEAST RICE [Concomitant]
  2. ASPIRIN [Concomitant]
     Dosage: UNK
  3. SYNTHROID [Concomitant]
     Dosage: UNK
  4. PROLIA [Suspect]
     Indication: OSTEOPOROSIS POSTMENOPAUSAL
     Dates: start: 20101213
  5. MUCINEX [Concomitant]

REACTIONS (6)
  - HEADACHE [None]
  - NECK PAIN [None]
  - BACK PAIN [None]
  - ARTHRALGIA [None]
  - SPEECH DISORDER [None]
  - AMNESIA [None]
